FAERS Safety Report 15127459 (Version 5)
Quarter: 2018Q4

REPORT INFORMATION
  Report Type: Spontaneous
  Country: US (occurrence: US)
  Receive Date: 20180710
  Receipt Date: 20181106
  Transmission Date: 20190204
  Serious: No
  Sender: FDA-Public Use
  Company Number: US-TAKEDA-2018MPI009218

PATIENT
  Age: 80 Year
  Sex: Male
  Weight: 75.74 kg

DRUGS (1)
  1. NINLARO [Suspect]
     Active Substance: IXAZOMIB CITRATE
     Indication: PLASMA CELL MYELOMA
     Dosage: 3 MG, UNK
     Route: 048
     Dates: start: 20180529

REACTIONS (8)
  - Oral mucosal blistering [Unknown]
  - Urticaria [Unknown]
  - Vision blurred [Unknown]
  - Hypersensitivity [Unknown]
  - Diarrhoea [Unknown]
  - Platelet count decreased [Unknown]
  - Rash generalised [Unknown]
  - Fatigue [Unknown]

NARRATIVE: CASE EVENT DATE: 20180616
